FAERS Safety Report 11851712 (Version 3)
Quarter: 2016Q1

REPORT INFORMATION
  Report Type: Spontaneous
  Country: FR (occurrence: FR)
  Receive Date: 20151218
  Receipt Date: 20160325
  Transmission Date: 20160526
  Serious: Yes (Life-Threatening, Hospitalization, Disabling, Other)
  Sender: FDA-Public Use
  Company Number: FR-AMGEN-FRASP2015134981

PATIENT
  Age: 67 Year
  Sex: Male

DRUGS (14)
  1. RAMIPRIL. [Concomitant]
     Active Substance: RAMIPRIL
     Dosage: 2.5 MG, 1X/DAY
  2. CLAMOXYL                           /00249601/ [Concomitant]
     Active Substance: AMOXICILLIN
     Dosage: 1 G, 2X/DAY
  3. ZOLPIDEM [Concomitant]
     Active Substance: ZOLPIDEM\ZOLPIDEM TARTRATE
     Dosage: 5 MG, 1X/DAY
  4. LASILIX                            /00032601/ [Concomitant]
     Active Substance: FUROSEMIDE
     Dosage: 40 MG, DAILY
  5. ATORVASTATIN [Concomitant]
     Active Substance: ATORVASTATIN
     Dosage: 10 MG, 1X/DAY
  6. NERISONE [Concomitant]
     Active Substance: DIFLUCORTOLONE VALERATE
     Dosage: 1 DF, 2X/DAY
  7. EUPANTOL [Concomitant]
     Active Substance: PANTOPRAZOLE SODIUM
     Dosage: 40 MG, 1X/DAY
  8. XATRAL [Concomitant]
     Active Substance: ALFUZOSIN
     Dosage: 10 MG, 1X/DAY
  9. DIFFU-K [Concomitant]
     Active Substance: POTASSIUM CHLORIDE
     Dosage: 600 MG, 3X/DAY
  10. PREVISCAN                          /00261401/ [Concomitant]
     Active Substance: PENTOXIFYLLINE
     Dosage: 10 MG, 1X/DAY
  11. BISOPROLOL [Concomitant]
     Active Substance: BISOPROLOL
     Dosage: 1.25 MG, 1X/DAY
  12. LIPIKAR                            /02826001/ [Concomitant]
     Dosage: 1 DF, 1X/DAY
  13. ENBREL [Suspect]
     Active Substance: ETANERCEPT
     Indication: RHEUMATOID ARTHRITIS
     Dosage: 50 MG, UNK
     Route: 065
     Dates: start: 2008, end: 201506
  14. AMIODARONE [Concomitant]
     Active Substance: AMIODARONE
     Dosage: 200 MG, 1X/DAY, 5DAYS OUT OF 7

REACTIONS (5)
  - Device related infection [Recovering/Resolving]
  - Psoriatic arthropathy [Not Recovered/Not Resolved]
  - Endocarditis enterococcal [Recovering/Resolving]
  - Gastrointestinal haemorrhage [Recovered/Resolved]
  - Tricuspid valve incompetence [Unknown]

NARRATIVE: CASE EVENT DATE: 201506
